FAERS Safety Report 19159067 (Version 3)
Quarter: 2021Q2

REPORT INFORMATION
  Report Type: Spontaneous
  Country: US (occurrence: US)
  Receive Date: 20210420
  Receipt Date: 20210521
  Transmission Date: 20210717
  Serious: Yes (Other)
  Sender: FDA-Public Use
  Company Number: US-BRAINTREE LABORATORIES, INC.-2021BTE00168

PATIENT
  Age: 73 Year
  Sex: Female

DRUGS (1)
  1. SUPREP BOWEL PREP [Suspect]
     Active Substance: MAGNESIUM SULFATE\POTASSIUM SULFATE\SODIUM SULFATE
     Indication: COLONOSCOPY
     Dosage: 2 X 6 OZ. BOTTTLE, 1X
     Route: 048
     Dates: start: 20210228, end: 20210301

REACTIONS (13)
  - Headache [Recovering/Resolving]
  - Vomiting [Recovered/Resolved]
  - Visual field defect [Recovering/Resolving]
  - Dehydration [Recovered/Resolved]
  - Dysgeusia [Recovered/Resolved]
  - Decreased appetite [Recovering/Resolving]
  - Vertigo positional [Not Recovered/Not Resolved]
  - Auditory nerve disorder [Recovering/Resolving]
  - Balance disorder [Recovering/Resolving]
  - Chest discomfort [Recovered/Resolved]
  - Feeling abnormal [Recovered/Resolved]
  - Heart rate increased [Recovered/Resolved]
  - Food aversion [Unknown]

NARRATIVE: CASE EVENT DATE: 2021
